FAERS Safety Report 10220058 (Version 2)
Quarter: 2014Q2

REPORT INFORMATION
  Report Type: Spontaneous
  Country: JP (occurrence: JP)
  Receive Date: 20140605
  Receipt Date: 20140605
  Transmission Date: 20141212
  Serious: Yes (Other)
  Sender: FDA-Public Use
  Company Number: JP-JNJFOC-20140510952

PATIENT
  Sex: 0

DRUGS (3)
  1. SOVRIAD [Suspect]
     Indication: CHRONIC HEPATITIS C
     Route: 048
  2. PEGINTERFERON ALFA 2A [Concomitant]
     Indication: CHRONIC HEPATITIS C
     Route: 058
  3. RIBAVIRIN [Concomitant]
     Indication: CHRONIC HEPATITIS C
     Route: 048

REACTIONS (5)
  - Anaemia [Unknown]
  - Renal disorder [Unknown]
  - Skin lesion [Unknown]
  - Blood bilirubin increased [Unknown]
  - Rash [Unknown]
